FAERS Safety Report 6849978-7 (Version None)
Quarter: 2010Q3

REPORT INFORMATION
  Report Type: 
  Country: None (occurrence: None)
  Receive Date: 20100716
  Receipt Date: 20071012
  Transmission Date: 20110219
  Serious: No
  Sender: FDA-Public Use
  Company Number: US-PFIZER INC-2007085474

PATIENT
  Sex: Female
  Weight: 77.1 kg

DRUGS (6)
  1. CHANTIX [Suspect]
     Indication: SMOKING CESSATION THERAPY
     Dates: start: 20070201, end: 20070201
  2. PROZAC [Concomitant]
  3. ZIAC [Concomitant]
     Indication: HYPERTENSION
  4. LIPITOR [Concomitant]
  5. PREVACID [Concomitant]
  6. ALL OTHER THERAPEUTIC PRODUCTS [Concomitant]

REACTIONS (1)
  - HEADACHE [None]
